FAERS Safety Report 7483483-2 (Version None)
Quarter: 2011Q2

REPORT INFORMATION
  Report Type: 
  Country: None (occurrence: None)
  Receive Date: 20110509
  Receipt Date: 20110429
  Transmission Date: 20111010
  Serious: No
  Sender: FDA-Public Use
  Company Number: 2011-00246

PATIENT
  Age: 22 Year
  Sex: Female
  Weight: 55.7924 kg

DRUGS (3)
  1. ZICAM EXTREME CONGESTION RELIEF [Suspect]
     Dosage: 2X/3X DAY
     Dates: end: 20110429
  2. AMOXICILLIN [Concomitant]
  3. PRENATAL VITAMINS [Concomitant]

REACTIONS (2)
  - ANOSMIA [None]
  - AGEUSIA [None]
